FAERS Safety Report 4786682-3 (Version None)
Quarter: 2005Q4

REPORT INFORMATION
  Report Type: 
  Country: None (occurrence: None)
  Receive Date: 20051004
  Receipt Date: 20050613
  Transmission Date: 20060501
  Serious: Yes (Hospitalization)
  Sender: FDA-Public Use
  Company Number: US-BOEHRINGER INGELHEIM PHARMACEUTICALS, INC.-2005-BP-09916BP

PATIENT
  Age: 73 Year
  Sex: Male

DRUGS (6)
  1. SPIRIVA [Suspect]
     Indication: CHRONIC OBSTRUCTIVE PULMONARY DISEASE
     Route: 055
     Dates: start: 20050201, end: 20050610
  2. SPIRIVA [Suspect]
     Indication: EMPHYSEMA
  3. NEXIUM [Concomitant]
     Route: 048
  4. TOPROL-XL [Concomitant]
  5. ELANOPRIL [Concomitant]
  6. ECOTRIN [Concomitant]

REACTIONS (11)
  - ASTHENIA [None]
  - DYSPHONIA [None]
  - GASTROOESOPHAGEAL REFLUX DISEASE [None]
  - HIATUS HERNIA [None]
  - INSOMNIA [None]
  - NAUSEA [None]
  - OESOPHAGEAL DISORDER [None]
  - THROAT IRRITATION [None]
  - TREMOR [None]
  - VOCAL CORD DISORDER [None]
  - WEIGHT DECREASED [None]
